FAERS Safety Report 19060213 (Version 2)
Quarter: 2021Q2

REPORT INFORMATION
  Report Type: Report from Study
  Country: BR (occurrence: BR)
  Receive Date: 20210326
  Receipt Date: 20210614
  Transmission Date: 20210717
  Serious: Yes (Death, Hospitalization, Other)
  Sender: FDA-Public Use
  Company Number: BR-B.I. PHARMACEUTICALS,INC./RIDGEFIELD-2021-BI-092771

PATIENT
  Age: 70 Year
  Sex: Male

DRUGS (2)
  1. DOCETAXEL. [Suspect]
     Active Substance: DOCETAXEL
     Indication: LUNG ADENOCARCINOMA
     Dosage: EVERY 3 WEEKS
     Dates: start: 202008
  2. OFEV [Suspect]
     Active Substance: NINTEDANIB
     Indication: LUNG ADENOCARCINOMA
     Dosage: TWICE DAILY FROM D2 TO D21.
     Dates: start: 202008

REACTIONS (9)
  - Hypoxia [Unknown]
  - Hiccups [Unknown]
  - Death [Fatal]
  - COVID-19 [Unknown]
  - Febrile neutropenia [Recovered/Resolved]
  - Acute respiratory distress syndrome [Unknown]
  - Pyrexia [Unknown]
  - Dyspnoea [Unknown]
  - Neutropenia [Recovered/Resolved]

NARRATIVE: CASE EVENT DATE: 202101
